FAERS Safety Report 5745454-3 (Version None)
Quarter: 2008Q2

REPORT INFORMATION
  Report Type: 
  Country: None (occurrence: None)
  Receive Date: 20080519
  Receipt Date: 20080201
  Transmission Date: 20081010
  Serious: No
  Sender: FDA-Public Use
  Company Number: TPA2008A00074

PATIENT
  Age: 35 Year
  Sex: Female
  Weight: 68.9467 kg

DRUGS (3)
  1. ROZEREM [Suspect]
     Indication: DRUG USE FOR UNKNOWN INDICATION
     Dosage: 8 MG, 1 IN 1 D, PER ORAL
     Route: 048
     Dates: start: 20071010, end: 20071219
  2. PROZAC [Concomitant]
  3. ELIMIRON (ALL OTHER THERAPEUTIC PRODUCTS) [Concomitant]

REACTIONS (2)
  - OPEN WOUND [None]
  - RASH [None]
